FAERS Safety Report 8215894-1 (Version None)
Quarter: 2012Q1

REPORT INFORMATION
  Report Type: 
  Country: None (occurrence: None)
  Receive Date: 20120316
  Receipt Date: 20120307
  Transmission Date: 20120608
  Serious: Yes (Hospitalization)
  Sender: FDA-Public Use
  Company Number: US-JNJFOC-20120304520

PATIENT
  Age: 86 Year
  Sex: Female

DRUGS (8)
  1. PEPCID COMPLETE [Suspect]
     Indication: GASTROOESOPHAGEAL REFLUX DISEASE
     Route: 048
  2. PEPCID AC [Suspect]
     Indication: GASTROOESOPHAGEAL REFLUX DISEASE
     Dosage: 1-2X DAILY
     Route: 048
  3. FAMOTIDINE [Suspect]
     Indication: DYSPEPSIA
     Route: 065
  4. PRILOSEC [Suspect]
     Indication: DYSPEPSIA
     Dosage: 1 TO 2X DAILY
     Route: 065
  5. PEPCID COMPLETE [Suspect]
     Indication: DYSPEPSIA
     Route: 048
  6. PEPCID AC [Suspect]
     Indication: DYSPEPSIA
     Dosage: 1-2X DAILY
     Route: 048
  7. PEPCID AC [Suspect]
     Indication: DYSPEPSIA
     Dosage: 1-2X DAILY
     Route: 048
  8. PEPCID AC (GELTAB) [Suspect]
     Indication: GASTROOESOPHAGEAL REFLUX DISEASE
     Dosage: 1-2X DAILY
     Route: 048

REACTIONS (2)
  - GASTRIC DISORDER [None]
  - DRUG ADMINISTRATION ERROR [None]
